FAERS Safety Report 8232629-7 (Version None)
Quarter: 2012Q1

REPORT INFORMATION
  Report Type: 
  Country: None (occurrence: None)
  Receive Date: 20120323
  Receipt Date: 20120309
  Transmission Date: 20120608
  Serious: Yes (Other)
  Sender: FDA-Public Use
  Company Number: CHPA2012US004881

PATIENT
  Sex: Female

DRUGS (2)
  1. EXCEDRIN EXTRA STRENGTH TABLETS [Suspect]
     Indication: MIGRAINE
     Dosage: UNK DF, PRN
     Route: 048
     Dates: start: 19730101, end: 20070101
  2. SUMATRIPTAN [Concomitant]
     Indication: MIGRAINE
     Dosage: 1 DF, PRN

REACTIONS (4)
  - GASTRITIS EROSIVE [None]
  - HIATUS HERNIA [None]
  - HAEMATEMESIS [None]
  - FOOT DEFORMITY [None]
